FAERS Safety Report 22267947 (Version 2)
Quarter: 2024Q2

REPORT INFORMATION
  Report Type: Report from Study
  Country: US (occurrence: US)
  Receive Date: 20230430
  Receipt Date: 20240630
  Transmission Date: 20240716
  Serious: Yes (Other)
  Sender: FDA-Public Use
  Company Number: US-002147023-NVSC2023US098370

PATIENT
  Sex: Female

DRUGS (1)
  1. TASIGNA [Suspect]
     Active Substance: NILOTINIB
     Indication: Chronic myeloid leukaemia (in remission)
     Dosage: 150 MG, QID
     Route: 048

REACTIONS (3)
  - Leukaemia [Unknown]
  - Bursitis [Unknown]
  - Pain [Unknown]
